FAERS Safety Report 5910349-9 (Version None)
Quarter: 2008Q4

REPORT INFORMATION
  Report Type: 
  Country: None (occurrence: None)
  Receive Date: 20081007
  Receipt Date: 20080312
  Transmission Date: 20090506
  Serious: No
  Sender: FDA-Public Use
  Company Number: US-ASTRAZENECA-2007UW28162

PATIENT
  Sex: Female

DRUGS (7)
  1. ARIMIDEX [Suspect]
     Indication: BREAST CANCER
     Route: 048
     Dates: start: 20060101
  2. ZOLOFT [Concomitant]
  3. METHOTREXATE SODIUM [Concomitant]
     Indication: ARTHRITIS
  4. ZOCOR [Concomitant]
  5. ALEVE [Concomitant]
     Indication: ARTHRITIS
  6. ACTINAL [Concomitant]
  7. CALCIUM [Concomitant]

REACTIONS (4)
  - BONE PAIN [None]
  - INFLUENZA LIKE ILLNESS [None]
  - PAIN [None]
  - PSORIATIC ARTHROPATHY [None]
